FAERS Safety Report 22059035 (Version 1)
Quarter: 2023Q1

REPORT INFORMATION
  Report Type: Report from Study
  Country: GB (occurrence: GB)
  Receive Date: 20230303
  Receipt Date: 20230303
  Transmission Date: 20230418
  Serious: Yes (Other)
  Sender: FDA-Public Use
  Company Number: GB-TEVA-2023-GB-2860187

PATIENT
  Sex: Female

DRUGS (1)
  1. AJOVY [Suspect]
     Active Substance: FREMANEZUMAB-VFRM
     Indication: Product used for unknown indication
     Dosage: FORM STRENGTH AND UNIT DOSE: 225MILLIGRAM
     Route: 065

REACTIONS (5)
  - Ocular discomfort [Unknown]
  - Asthenopia [Unknown]
  - Abnormal sensation in eye [Unknown]
  - Visual impairment [Unknown]
  - Headache [Unknown]
